FAERS Safety Report 7434090-9 (Version None)
Quarter: 2011Q2

REPORT INFORMATION
  Report Type: 
  Country: None (occurrence: None)
  Receive Date: 20110425
  Receipt Date: 20100329
  Transmission Date: 20111010
  Serious: No
  Sender: FDA-Public Use
  Company Number: US-MYLANLABS-2010S1004133

PATIENT
  Age: 73 Year
  Sex: Female
  Weight: 72.58 kg

DRUGS (2)
  1. ADVIL LIQUI-GELS [Concomitant]
     Indication: ARTHRITIS
     Route: 048
  2. LORAZEPAM [Suspect]
     Indication: ANXIETY
     Route: 048
     Dates: start: 20070101

REACTIONS (8)
  - DIZZINESS [None]
  - PALPITATIONS [None]
  - INSOMNIA [None]
  - DYSGEUSIA [None]
  - DRUG EFFECT DECREASED [None]
  - DYSPNOEA [None]
  - VISUAL IMPAIRMENT [None]
  - CHEST DISCOMFORT [None]
